FAERS Safety Report 9725377 (Version 1)
Quarter: 2013Q4

REPORT INFORMATION
  Report Type: Spontaneous
  Country: US (occurrence: None)
  Receive Date: 20131202
  Receipt Date: 20131202
  Transmission Date: 20140711
  Serious: Yes (Disabling)
  Sender: FDA-Public Use
  Company Number: None

PATIENT
  Age: 54 Year
  Sex: Female
  Weight: 49.9 kg

DRUGS (2)
  1. LETROZOLE [Suspect]
     Indication: BREAST CANCER
     Dosage: 2.5 MG/DAY  ONCE DAILY  TAKEN BY MOUTH?TAKING FOR 4 MORE YRS
     Route: 048
  2. LETROZOLE [Suspect]
     Indication: ADJUVANT THERAPY
     Dosage: 2.5 MG/DAY  ONCE DAILY  TAKEN BY MOUTH?TAKING FOR 4 MORE YRS
     Route: 048

REACTIONS (1)
  - Cataract subcapsular [None]
